FAERS Safety Report 17000199 (Version 2)
Quarter: 2019Q4

REPORT INFORMATION
  Report Type: Report from Study
  Country: US (occurrence: US)
  Receive Date: 20191106
  Receipt Date: 20191108
  Transmission Date: 20200122
  Serious: Yes (Other)
  Sender: FDA-Public Use
  Company Number: US-GILEAD-2019-0433725

PATIENT
  Age: 44 Year
  Sex: Female

DRUGS (3)
  1. UPTRAVI [Concomitant]
     Active Substance: SELEXIPAG
  2. SILDENAFIL. [Concomitant]
     Active Substance: SILDENAFIL
  3. AMBRISENTAN [Suspect]
     Active Substance: AMBRISENTAN
     Indication: PULMONARY HYPERTENSION
     Dosage: 10 MG, QD
     Route: 048
     Dates: start: 20190807

REACTIONS (12)
  - Pain [Unknown]
  - Dizziness [Unknown]
  - Nausea [Unknown]
  - Intentional dose omission [Not Recovered/Not Resolved]
  - Pancreatitis [Unknown]
  - Diarrhoea [Unknown]
  - Skin exfoliation [Unknown]
  - Hypotension [Unknown]
  - Headache [Unknown]
  - Alopecia [Unknown]
  - Malaise [Not Recovered/Not Resolved]
  - Syncope [Unknown]

NARRATIVE: CASE EVENT DATE: 20191103
